FAERS Safety Report 13360011 (Version 1)
Quarter: 2017Q1

REPORT INFORMATION
  Report Type: Spontaneous
  Country: CD (occurrence: CD)
  Receive Date: 20170322
  Receipt Date: 20170322
  Transmission Date: 20170429
  Serious: Yes (Death)
  Sender: FDA-Public Use
  Company Number: CD-JNJFOC-20170317514

PATIENT
  Age: 45 Year
  Sex: Female

DRUGS (12)
  1. ISONIAZID. [Concomitant]
     Active Substance: ISONIAZID
     Indication: TUBERCULOSIS
     Dates: start: 20160824
  2. VITAMIN B6 [Concomitant]
     Active Substance: PYRIDOXINE HYDROCHLORIDE
     Indication: PRODUCT USED FOR UNKNOWN INDICATION
  3. BEDAQUILINE [Suspect]
     Active Substance: BEDAQUILINE
     Indication: TUBERCULOSIS
     Dosage: 4 TABS(400MG)/DAY FOR 14 DAYS AND 2 TABS(200MG)/DAY 3 TIMES A WEEK
     Route: 048
     Dates: start: 20160824
  4. BEDAQUILINE [Suspect]
     Active Substance: BEDAQUILINE
     Indication: TUBERCULOSIS
     Route: 048
  5. AMIKACIN [Concomitant]
     Active Substance: AMIKACIN
     Indication: TUBERCULOSIS
     Dates: start: 20160824
  6. SPASFON [Concomitant]
     Active Substance: PHLOROGLUCINOL
     Indication: ABDOMINAL PAIN
  7. PYRAZINAMIDE. [Concomitant]
     Active Substance: PYRAZINAMIDE
     Indication: TUBERCULOSIS
     Dates: start: 20160824
  8. CLOFAZIMINE [Concomitant]
     Active Substance: CLOFAZIMINE
     Indication: TUBERCULOSIS
     Dates: start: 20160824
  9. PARA-AMINOSALICYLIC ACID [Concomitant]
     Active Substance: AMINOSALICYLIC ACID
     Indication: TUBERCULOSIS
     Dosage: 4G X 2
     Dates: start: 20160824
  10. VITAMINS C [Concomitant]
     Indication: PRODUCT USED FOR UNKNOWN INDICATION
  11. IMODIUM [Concomitant]
     Active Substance: LOPERAMIDE HYDROCHLORIDE
     Indication: PRODUCT USED FOR UNKNOWN INDICATION
  12. RHINATHIOL ADULTES [Concomitant]
     Indication: PRODUCT USED FOR UNKNOWN INDICATION

REACTIONS (5)
  - Pyrexia [Unknown]
  - Hypovolaemia [Fatal]
  - Abdominal pain [Unknown]
  - Septic shock [Fatal]
  - Diarrhoea [Unknown]

NARRATIVE: CASE EVENT DATE: 20160914
